FAERS Safety Report 8183117-8 (Version None)
Quarter: 2012Q1

REPORT INFORMATION
  Report Type: 
  Country: None (occurrence: None)
  Receive Date: 20120305
  Receipt Date: 20120227
  Transmission Date: 20120608
  Serious: Yes (Other)
  Sender: FDA-Public Use
  Company Number: CA-AMGEN-CANSP2011030734

PATIENT
  Age: 19 Year
  Sex: Female
  Weight: 52.2 kg

DRUGS (4)
  1. ARAVA [Concomitant]
     Dosage: UNK
  2. ENBREL [Suspect]
     Indication: RHEUMATOID ARTHRITIS
     Dosage: 50 MG, QWK
     Dates: start: 20101009, end: 20110801
  3. HUMIRA [Concomitant]
     Dosage: UNK
     Dates: start: 20111001
  4. CELEBREX [Concomitant]
     Dosage: UNK

REACTIONS (3)
  - CROHN'S DISEASE [None]
  - HAEMATOCHEZIA [None]
  - GASTROINTESTINAL ULCER [None]
